FAERS Safety Report 18432404 (Version 1)
Quarter: 2020Q4

REPORT INFORMATION
  Report Type: Spontaneous
  Country: US (occurrence: US)
  Receive Date: 20201027
  Receipt Date: 20201027
  Transmission Date: 20210114
  Serious: No
  Sender: FDA-Public Use
  Company Number: US-SA-2020SA298932

PATIENT

DRUGS (1)
  1. DUPIXENT [Suspect]
     Active Substance: DUPILUMAB
     Indication: NASAL POLYPS
     Dosage: 300 MG, QOW
     Route: 058

REACTIONS (6)
  - Vision blurred [Unknown]
  - Rhinorrhoea [Unknown]
  - Condition aggravated [Unknown]
  - Arthralgia [Unknown]
  - Visual impairment [Unknown]
  - Sneezing [Unknown]

NARRATIVE: CASE EVENT DATE: 2020
